FAERS Safety Report 5573900-7 (Version None)
Quarter: 2007Q4

REPORT INFORMATION
  Report Type: 
  Country: None (occurrence: None)
  Receive Date: 20071220
  Receipt Date: 20071231
  Transmission Date: 20080405
  Serious: Yes (Hospitalization)
  Sender: FDA-Public Use
  Company Number: 65060

PATIENT
  Age: 76 Year
  Sex: Female

DRUGS (6)
  1. ACETAMINOPHEN/500/ PERRIGO [Suspect]
     Dosage: ORAL
     Route: 048
     Dates: start: 20071108
  2. POTASSIUM SUPPLEMENT [Concomitant]
  3. TRIAMTERINE/HYDROCHLOROTHIAZIDE TABLETS [Concomitant]
  4. LASIX [Concomitant]
  5. SPIRIVAL [Concomitant]
  6. ASPIRIN [Concomitant]

REACTIONS (5)
  - DRY SKIN [None]
  - PNEUMONIA [None]
  - PRURITUS [None]
  - RASH GENERALISED [None]
  - VIRAL INFECTION [None]
